FAERS Safety Report 24342368 (Version 1)
Quarter: 2024Q3

REPORT INFORMATION
  Report Type: Report from Study
  Country: KR (occurrence: KR)
  Receive Date: 20240920
  Receipt Date: 20240920
  Transmission Date: 20241017
  Serious: Yes (Hospitalization)
  Sender: SERVIER
  Company Number: KR-SERVIER-S24011327

PATIENT

DRUGS (3)
  1. PEGASPARGASE [Suspect]
     Active Substance: PEGASPARGASE
     Indication: Acute lymphocytic leukaemia
     Dosage: 3200 IU, ONE DOSE
     Route: 030
     Dates: start: 20230818
  2. PURINETONE [Concomitant]
     Indication: Acute lymphocytic leukaemia
     Dosage: 125 MG, QD
     Route: 048
     Dates: start: 20230705
  3. METHOTREXATE [Concomitant]
     Active Substance: METHOTREXATE
     Indication: Acute lymphocytic leukaemia
     Dosage: 6400 MG, QD
     Route: 042
     Dates: start: 20230918

REACTIONS (3)
  - Bacteraemia [Recovered/Resolved]
  - Pyrexia [Recovered/Resolved]
  - Hepatic function abnormal [Recovered/Resolved]

NARRATIVE: CASE EVENT DATE: 20230826
